FAERS Safety Report 9586617 (Version 1)
Quarter: 2013Q4

REPORT INFORMATION
  Report Type: Spontaneous
  Country: US (occurrence: US)
  Receive Date: 20131003
  Receipt Date: 20131003
  Transmission Date: 20140711
  Serious: No
  Sender: FDA-Public Use
  Company Number: US-BAYER-2013-119227

PATIENT
  Age: 76 Year
  Sex: Female

DRUGS (4)
  1. ALEVE CAPLET [Suspect]
     Indication: ARTHRITIS
     Dosage: 2 DF, QD
     Route: 048
  2. INSULIN [INSULIN] [Concomitant]
  3. ZETIA [Concomitant]
  4. CIPRO [Concomitant]

REACTIONS (1)
  - Incorrect drug administration duration [None]
